FAERS Safety Report 7326551-8 (Version None)
Quarter: 2011Q1

REPORT INFORMATION
  Report Type: 
  Country: None (occurrence: None)
  Receive Date: 20110218
  Receipt Date: 20110208
  Transmission Date: 20110831
  Serious: Yes (Other)
  Sender: FDA-Public Use
  Company Number: 2011000635

PATIENT
  Age: 74 Year
  Sex: Male

DRUGS (1)
  1. TARCEVA [Suspect]
     Indication: LUNG NEOPLASM MALIGNANT
     Dosage: (150 GBQ, DAILY), ORAL
     Route: 048
     Dates: start: 20101209

REACTIONS (4)
  - RASH [None]
  - DRUG INEFFECTIVE [None]
  - OESOPHAGEAL ULCER [None]
  - DYSPNOEA [None]
